FAERS Safety Report 7085449-3 (Version None)
Quarter: 2010Q4

REPORT INFORMATION
  Report Type: 
  Country: None (occurrence: None)
  Receive Date: 20101105
  Receipt Date: 20101102
  Transmission Date: 20110411
  Serious: Yes (Hospitalization)
  Sender: FDA-Public Use
  Company Number: ES-PFIZER INC-2010139812

PATIENT
  Age: 68 Year
  Sex: Female

DRUGS (5)
  1. BESITRAN [Suspect]
     Indication: DEPRESSION
     Dosage: 50 MG, UNK
     Route: 048
     Dates: start: 20100101
  2. RASAGILINE [Interacting]
     Indication: PARKINSON'S DISEASE
     Dosage: UNK
     Route: 048
     Dates: start: 20100101, end: 20100618
  3. MIRAPEXIN [Interacting]
     Indication: PARKINSON'S DISEASE
     Dosage: 0.36 MG, 2X/DAY
     Route: 048
     Dates: start: 20100101
  4. PLURIMEN [Interacting]
     Indication: PARKINSON'S DISEASE
     Dosage: 5 MG, 1X/DAY
     Route: 048
     Dates: start: 20100101
  5. SINEMET [Interacting]
     Indication: PARKINSON'S DISEASE
     Dosage: 25MG/100 MG, 5X/DAY
     Route: 048
     Dates: start: 20100101

REACTIONS (2)
  - DRUG INTERACTION [None]
  - SYNCOPE [None]
